FAERS Safety Report 4837945-4 (Version None)
Quarter: 2005Q4

REPORT INFORMATION
  Report Type: 
  Country: None (occurrence: None)
  Receive Date: 20051128
  Receipt Date: 20051111
  Transmission Date: 20060501
  Serious: Yes (Life-Threatening)
  Sender: FDA-Public Use
  Company Number: JP-ROCHE-424912

PATIENT
  Age: 78 Year
  Sex: Female

DRUGS (5)
  1. ROCEPHIN [Suspect]
     Route: 041
     Dates: start: 20051024, end: 20051025
  2. CRAVIT [Concomitant]
     Route: 048
     Dates: start: 20051024, end: 20051025
  3. LOXONIN [Concomitant]
     Route: 048
     Dates: start: 20051024, end: 20051025
  4. SOLDEM [Concomitant]
     Route: 041
     Dates: start: 20051025, end: 20051025
  5. VITAMEDIN [Concomitant]
     Route: 041
     Dates: start: 20051025, end: 20051025

REACTIONS (17)
  - ACUTE RESPIRATORY DISTRESS SYNDROME [None]
  - ANOREXIA [None]
  - BLOOD PRESSURE SYSTOLIC INCREASED [None]
  - BLOOD UREA INCREASED [None]
  - CARDIOMEGALY [None]
  - COAGULOPATHY [None]
  - DEPRESSED LEVEL OF CONSCIOUSNESS [None]
  - DISSEMINATED INTRAVASCULAR COAGULATION [None]
  - HEART RATE INCREASED [None]
  - INFLAMMATION [None]
  - LYMPHOBLAST COUNT INCREASED [None]
  - NEUTROPHIL COUNT INCREASED [None]
  - PLATELET COUNT DECREASED [None]
  - PULMONARY OEDEMA [None]
  - RESPIRATORY FAILURE [None]
  - SEPSIS [None]
  - SHOCK [None]
